FAERS Safety Report 6794628-1 (Version None)
Quarter: 2010Q2

REPORT INFORMATION
  Report Type: 
  Country: None (occurrence: None)
  Receive Date: 20100625
  Receipt Date: 20100617
  Transmission Date: 20101027
  Serious: Yes (Other)
  Sender: FDA-Public Use
  Company Number: JP-JNJFOC-20100606973

PATIENT
  Age: 90 Year
  Sex: Female

DRUGS (1)
  1. CRAVIT [Suspect]
     Indication: EOSINOPENIA
     Route: 048

REACTIONS (3)
  - COMA [None]
  - HYPOGLYCAEMIA [None]
  - RASH [None]
